FAERS Safety Report 14479432 (Version 4)
Quarter: 2019Q1

REPORT INFORMATION
  Report Type: Spontaneous
  Country: PL (occurrence: PL)
  Receive Date: 20180202
  Receipt Date: 20190116
  Transmission Date: 20190417
  Serious: Yes (Hospitalization, Other)
  Sender: FDA-Public Use
  Company Number: PL-AUROBINDO-AUR-APL-2018-004188

PATIENT
  Age: 34 Year
  Sex: Female

DRUGS (9)
  1. HYDROXYZINE [Interacting]
     Active Substance: HYDROXYZINE HYDROCHLORIDE
     Indication: DEPRESSIVE SYMPTOM
     Dosage: 75 MG, DAILY
     Route: 065
  2. FLUOXETINE [Interacting]
     Active Substance: FLUOXETINE HYDROCHLORIDE
     Indication: VOMITING
     Dosage: MORNING DOSE OF 20 MG
     Route: 048
  3. FLUOXETINE [Suspect]
     Active Substance: FLUOXETINE HYDROCHLORIDE
     Indication: BULIMIA NERVOSA
     Dosage: MORNING DOSE OF 20 MG
     Route: 048
  4. FLUOXETINE [Interacting]
     Active Substance: FLUOXETINE HYDROCHLORIDE
     Indication: DEPRESSIVE SYMPTOM
     Dosage: MORNING DOSE OF 20 MG
     Route: 048
  5. METFORMIN [Concomitant]
     Active Substance: METFORMIN HYDROCHLORIDE
     Indication: DIABETES MELLITUS
     Route: 065
  6. INSULIN [Concomitant]
     Active Substance: INSULIN NOS
     Indication: DIABETES MELLITUS
     Dosage: UNK
     Route: 065
  7. FLUOXETINE [Interacting]
     Active Substance: FLUOXETINE HYDROCHLORIDE
     Indication: BINGE EATING
     Dosage: MORNING DOSE OF 20 MG
     Route: 048
  8. AMITRIPTYLINE HYDROCHLORIDE. [Interacting]
     Active Substance: AMITRIPTYLINE HYDROCHLORIDE
     Dosage: 25 MG IN THE MORNING AND AT NOON AND 50 MG AT NIGHT
     Route: 065
  9. AMITRIPTYLINE HYDROCHLORIDE. [Interacting]
     Active Substance: AMITRIPTYLINE HYDROCHLORIDE
     Indication: DEPRESSIVE SYMPTOM
     Dosage: 3 DOSAGE FORM, DAILY
     Route: 065

REACTIONS (26)
  - Tearfulness [Not Recovered/Not Resolved]
  - Drug resistance [Unknown]
  - Increased appetite [Not Recovered/Not Resolved]
  - Hyperglycaemia [Unknown]
  - Irritability [Not Recovered/Not Resolved]
  - Anxiety [Unknown]
  - Vomiting [Unknown]
  - Drug ineffective [Unknown]
  - Tension [Unknown]
  - Diet failure [Unknown]
  - Blood glucose increased [Unknown]
  - Alanine aminotransferase increased [Unknown]
  - Insomnia [Unknown]
  - Weight increased [Unknown]
  - Binge eating [Unknown]
  - Dysphoria [Unknown]
  - Body mass index increased [Unknown]
  - Drug interaction [Unknown]
  - Hypoglycaemia [Unknown]
  - Underdose [Unknown]
  - Aspartate aminotransferase increased [Unknown]
  - Poor quality sleep [Unknown]
  - Fear [Unknown]
  - Affect lability [Not Recovered/Not Resolved]
  - Electrocardiogram QT prolonged [Unknown]
  - Condition aggravated [Unknown]
